FAERS Safety Report 4287507-5 (Version None)
Quarter: 2004Q1

REPORT INFORMATION
  Report Type: 
  Country: None (occurrence: None)
  Receive Date: 20040205
  Receipt Date: 20011121
  Transmission Date: 20041129
  Serious: Yes (Hospitalization)
  Sender: FDA-Public Use
  Company Number: E129202

PATIENT
  Age: 77 Year
  Sex: Female

DRUGS (4)
  1. CLOPIDOGREL BISULFATE [Suspect]
     Indication: ISCHAEMIC STROKE
     Dosage: 75 MG QD
     Route: 048
     Dates: start: 20010619, end: 20011113
  2. CLOPIDOGREL BISULFATE [Suspect]
     Indication: TRANSIENT ISCHAEMIC ATTACK
     Dosage: 75 MG QD; ORAL
     Route: 048
     Dates: start: 20011212
  3. FERROUS SULFATE TAB [Concomitant]
  4. OMEPRAZOLE [Concomitant]

REACTIONS (2)
  - COLON CANCER [None]
  - RECTAL HAEMORRHAGE [None]
